FAERS Safety Report 7793667-1 (Version None)
Quarter: 2011Q4

REPORT INFORMATION
  Report Type: 
  Country: None (occurrence: None)
  Receive Date: 20111003
  Receipt Date: 20110920
  Transmission Date: 20120403
  Serious: Yes (Other)
  Sender: FDA-Public Use
  Company Number: JP-CELGENEUS-087-21880-10113313

PATIENT
  Sex: Female
  Weight: 45 kg

DRUGS (28)
  1. REVLIMID [Suspect]
     Dosage: 25 MILLIGRAM
     Route: 048
     Dates: start: 20101106, end: 20101126
  2. REVLIMID [Suspect]
     Dosage: 15 MILLIGRAM
     Route: 048
     Dates: start: 20110226, end: 20110318
  3. REVLIMID [Suspect]
     Dosage: 15 MILLIGRAM
     Route: 048
     Dates: start: 20110331, end: 20110420
  4. DEXAMETHASONE [Suspect]
     Dosage: 20 MILLIGRAM
     Route: 048
     Dates: start: 20101204, end: 20101207
  5. DEXAMETHASONE [Suspect]
     Dosage: 20 MILLIGRAM
     Route: 048
     Dates: start: 20101212, end: 20101214
  6. VALTREX [Concomitant]
     Dosage: 500 MILLIGRAM
     Route: 048
     Dates: start: 20100101
  7. BEZATOL SR [Concomitant]
     Dosage: 400 MILLIGRAM
     Route: 048
     Dates: end: 20101014
  8. ZOMETA [Concomitant]
     Dosage: 4 MILLIGRAM
     Route: 041
     Dates: start: 20101119, end: 20101119
  9. DEXAMETHASONE [Suspect]
     Indication: MULTIPLE MYELOMA
     Dosage: 20 MILLIGRAM
     Route: 048
     Dates: start: 20101009, end: 20101026
  10. DEXAMETHASONE [Suspect]
     Dosage: 20 MILLIGRAM
     Route: 048
     Dates: start: 20110107, end: 20110113
  11. DEXAMETHASONE [Suspect]
     Dosage: 20 MILLIGRAM
     Route: 048
     Dates: start: 20110121, end: 20110124
  12. NORVASC [Concomitant]
     Indication: HYPERTENSION
     Dosage: 2.5 MILLIGRAM
     Route: 048
  13. BASEN [Concomitant]
     Indication: DIABETES MELLITUS
     Dosage: .6 MILLIGRAM
     Route: 048
  14. SULFAMETHOXAZOLE [Concomitant]
     Indication: PROPHYLAXIS
     Dosage: 2 TABLET
     Route: 048
  15. AMARYL [Concomitant]
     Dosage: 2 MILLIGRAM
     Route: 048
     Dates: start: 20101203, end: 20101210
  16. REVLIMID [Suspect]
     Indication: MULTIPLE MYELOMA
     Dosage: 25 MILLIGRAM
     Route: 048
     Dates: start: 20101009, end: 20101029
  17. DEXAMETHASONE [Suspect]
     Dosage: 20 MILLIGRAM
     Route: 048
     Dates: start: 20110218, end: 20110221
  18. AMARYL [Concomitant]
     Dosage: 2 MILLIGRAM
     Route: 048
     Dates: start: 20101119, end: 20101122
  19. AMARYL [Concomitant]
     Indication: DIABETES MELLITUS
     Dosage: 2 MILLIGRAM
     Route: 048
     Dates: start: 20101008, end: 20101025
  20. REVLIMID [Suspect]
     Dosage: 25 MILLIGRAM
     Route: 048
     Dates: start: 20110107, end: 20110128
  21. OMEPRAZOLE [Concomitant]
     Indication: PROPHYLAXIS
     Dosage: 20 MILLIGRAM
     Route: 048
     Dates: start: 20101008
  22. DIFLUCAN [Concomitant]
     Indication: PROPHYLAXIS
     Dosage: 200 MILLIGRAM
     Route: 048
  23. REVLIMID [Suspect]
     Dosage: 25 MILLIGRAM
     Route: 048
     Dates: start: 20101204, end: 20101214
  24. AMARYL [Concomitant]
     Dosage: 2 MILLIGRAM
     Route: 048
     Dates: start: 20101105, end: 20101112
  25. ZOMETA [Concomitant]
     Dosage: 4 MILLIGRAM
     Route: 041
     Dates: start: 20101217, end: 20101217
  26. DEXAMETHASONE [Suspect]
     Dosage: 20 MILLIGRAM
     Route: 048
     Dates: start: 20101106, end: 20101125
  27. DEXAMETHASONE [Suspect]
     Dosage: 20 MILLIGRAM
     Route: 048
     Dates: start: 20110325, end: 20110328
  28. ASPIRIN [Concomitant]
     Indication: PROPHYLAXIS
     Dosage: 100 MILLIGRAM
     Route: 048
     Dates: start: 20101203

REACTIONS (8)
  - DIARRHOEA [None]
  - NEUROPATHY PERIPHERAL [None]
  - DYSGEUSIA [None]
  - MALAISE [None]
  - ECZEMA [None]
  - GASTRIC ULCER [None]
  - DIABETES MELLITUS [None]
  - NEUTROPHIL COUNT DECREASED [None]
